FAERS Safety Report 9224898 (Version 1)
Quarter: 2013Q2

REPORT INFORMATION
  Report Type: Spontaneous
  Country: IT (occurrence: None)
  Receive Date: 20130409
  Receipt Date: 20130409
  Transmission Date: 20140414
  Serious: Yes (Hospitalization)
  Sender: FDA-Public Use
  Company Number: AUR-APL-2013-02705

PATIENT
  Age: 82 Year
  Sex: Male

DRUGS (8)
  1. LEVOFLOXACIN [Suspect]
     Indication: PYREXIA
     Dates: start: 20130221, end: 20130224
  2. GLIBOMET [Concomitant]
  3. LYRICA [Concomitant]
  4. BENERVA [Concomitant]
  5. FOLINA [Concomitant]
  6. SEROQUEL [Concomitant]
  7. LANSOPRAZOLE [Concomitant]
  8. FINASTERIDE [Concomitant]

REACTIONS (1)
  - Clonic convulsion [None]
